FAERS Safety Report 5211930-5 (Version None)
Quarter: 2007Q1

REPORT INFORMATION
  Report Type: 
  Country: None (occurrence: None)
  Receive Date: 20070118
  Receipt Date: 20070112
  Transmission Date: 20070707
  Serious: Yes (Life-Threatening, Hospitalization, Other)
  Sender: FDA-Public Use
  Company Number: 2006AC00715

PATIENT
  Age: 58 Year
  Sex: Female
  Weight: 65 kg

DRUGS (4)
  1. ARIMIDEX [Suspect]
     Indication: BREAST CANCER
     Route: 048
     Dates: start: 20051215, end: 20060125
  2. ADRIAMYCIN PFS [Concomitant]
     Indication: CHEMOTHERAPY
     Dosage: 4 CYCLES BETWEEN THESE DATES
     Dates: start: 20050701, end: 20051101
  3. CYCLOPHOSPHAMIDE [Concomitant]
     Indication: CHEMOTHERAPY
     Dosage: RECEIVED 4 CYCLES BETWEEN THESE DATES
     Dates: start: 20050701, end: 20051101
  4. VALSARTAN [Concomitant]
     Indication: ESSENTIAL HYPERTENSION
     Dates: start: 20030601

REACTIONS (7)
  - DYSPNOEA [None]
  - FATIGUE [None]
  - HEPATIC NECROSIS [None]
  - HEPATITIS [None]
  - NAUSEA [None]
  - THROMBOCYTOPENIA [None]
  - VOMITING [None]
